FAERS Safety Report 4728418-8 (Version None)
Quarter: 2005Q3

REPORT INFORMATION
  Report Type: 
  Country: None (occurrence: None)
  Receive Date: 20050729
  Receipt Date: 20041008
  Transmission Date: 20060218
  Serious: No
  Sender: FDA-Public Use
  Company Number: US-GLAXOSMITHKLINE-A0529097A

PATIENT
  Age: 3 Month
  Sex: Female

DRUGS (1)
  1. ZANTAC [Suspect]
     Dosage: .5ML THREE TIMES PER DAY
     Route: 048

REACTIONS (2)
  - DRUG INEFFECTIVE [None]
  - INSOMNIA [None]
